FAERS Safety Report 4551938-6 (Version None)
Quarter: 2004Q4

REPORT INFORMATION
  Report Type: 
  Country: None (occurrence: None)
  Receive Date: 20041217
  Receipt Date: 20040825
  Transmission Date: 20050328
  Serious: No
  Sender: FDA-Public Use
  Company Number: 2004-BP-07266BP

PATIENT
  Age: 61 Year
  Sex: Female

DRUGS (10)
  1. SPIRIVA [Suspect]
     Indication: CHRONIC OBSTRUCTIVE AIRWAYS DISEASE
     Dosage: 18 MCG (18 MCG, 1 IN 1 D), IH
     Route: 055
     Dates: start: 20040816
  2. ATROVENT [Concomitant]
  3. ADVAIR (SERETIDE MITE) [Concomitant]
  4. PROVENTIL (SALBUTAMOL SULFATE) [Concomitant]
  5. MAVIK [Concomitant]
  6. XANAX [Concomitant]
  7. SPIRONOLACTONE [Concomitant]
  8. PREVACID [Concomitant]
  9. PAXIL CR [Concomitant]
  10. OXYGEN (OXYGEN) [Concomitant]

REACTIONS (2)
  - COUGH [None]
  - RHINORRHOEA [None]
